FAERS Safety Report 23803945 (Version 1)
Quarter: 2024Q2

REPORT INFORMATION
  Report Type: Spontaneous
  Country: DE (occurrence: DE)
  Receive Date: 20240501
  Receipt Date: 20240501
  Transmission Date: 20240716
  Serious: Yes (Death)
  Sender: FDA-Public Use
  Company Number: DE-DCGMA-24203154

PATIENT
  Age: 37 Year
  Sex: Female
  Weight: 97 kg

DRUGS (1)
  1. AZITHROMYCIN [Suspect]
     Active Substance: AZITHROMYCIN
     Indication: Influenza
     Route: 048
     Dates: start: 20231107

REACTIONS (5)
  - Dyspnoea [Fatal]
  - Brain death [Fatal]
  - Anaphylactic reaction [Fatal]
  - Vomiting [Fatal]
  - Resuscitation [Fatal]

NARRATIVE: CASE EVENT DATE: 20231108
